FAERS Safety Report 21706043 (Version 1)
Quarter: 2022Q4

REPORT INFORMATION
  Report Type: Spontaneous
  Country: US (occurrence: US)
  Receive Date: 20221209
  Receipt Date: 20221209
  Transmission Date: 20230113
  Serious: No
  Sender: FDA-Public Use
  Company Number: US-BAYER-2022A163768

PATIENT
  Sex: Female

DRUGS (4)
  1. SKYLA [Suspect]
     Active Substance: LEVONORGESTREL
     Indication: Uterine leiomyoma
     Dosage: 14?G/DAY
     Route: 015
  2. SKYLA [Suspect]
     Active Substance: LEVONORGESTREL
     Indication: Genital haemorrhage
  3. KYLEENA [Suspect]
     Active Substance: LEVONORGESTREL
     Indication: Genital haemorrhage
     Dosage: 17.5?G/DAY
     Route: 015
  4. KYLEENA [Suspect]
     Active Substance: LEVONORGESTREL
     Indication: Uterine leiomyoma

REACTIONS (2)
  - Off label use of device [None]
  - Device use issue [None]
